FAERS Safety Report 21856042 (Version 1)
Quarter: 2023Q1

REPORT INFORMATION
  Report Type: Report from Study
  Country: US (occurrence: US)
  Receive Date: 20230112
  Receipt Date: 20230112
  Transmission Date: 20230418
  Serious: No
  Sender: FDA-Public Use
  Company Number: US-ABBVIE-4266836

PATIENT
  Sex: Female

DRUGS (1)
  1. VENCLEXTA [Suspect]
     Active Substance: VENETOCLAX
     Indication: Chronic lymphocytic leukaemia
     Dosage: TAKE BY MOUTH DAILY: TWO 10MG TABS X7DAYS, ONE 50MG TAB X7DAYS, ONE 100MG TAB X7DAYS, THEN TWO 10...
     Route: 048

REACTIONS (2)
  - Fatigue [Unknown]
  - White blood cell disorder [Unknown]
